FAERS Safety Report 17500595 (Version 2)
Quarter: 2020Q4

REPORT INFORMATION
  Report Type: Report from Study
  Country: IN (occurrence: IN)
  Receive Date: 20200305
  Receipt Date: 20201015
  Transmission Date: 20210113
  Serious: Yes (Death)
  Sender: FDA-Public Use
  Company Number: PHHY2014IN018825

PATIENT
  Age: 55 Year
  Sex: Male

DRUGS (1)
  1. GLIVEC [Suspect]
     Active Substance: IMATINIB MESYLATE
     Indication: CHRONIC MYELOID LEUKAEMIA
     Dosage: 800 MG (2 X 400MG TABLETS)
     Route: 048

REACTIONS (2)
  - Therapy non-responder [Unknown]
  - Death [Fatal]

NARRATIVE: CASE EVENT DATE: 20191028
